FAERS Safety Report 18627591 (Version 1)
Quarter: 2020Q4

REPORT INFORMATION
  Report Type: Spontaneous
  Country: CZ (occurrence: CZ)
  Receive Date: 20201217
  Receipt Date: 20201217
  Transmission Date: 20210114
  Serious: Yes (Other)
  Sender: FDA-Public Use
  Company Number: CZ-MYLANLABS-2020M1101537

PATIENT
  Age: 61 Year
  Sex: Female

DRUGS (4)
  1. DOCETAXEL. [Suspect]
     Active Substance: DOCETAXEL
     Indication: HER2 POSITIVE BREAST CANCER
     Dosage: UNK
     Route: 065
     Dates: start: 201608, end: 201610
  2. DOXORUBICIN [Suspect]
     Active Substance: DOXORUBICIN
     Indication: INTRADUCTAL PROLIFERATIVE BREAST LESION
     Dosage: 4 CYCLES
     Dates: start: 201606, end: 201608
  3. CYCLOPHOSPHAMIDE. [Suspect]
     Active Substance: CYCLOPHOSPHAMIDE
     Indication: INTRADUCTAL PROLIFERATIVE BREAST LESION
     Dosage: 4 CYCLES
     Route: 065
     Dates: start: 201606, end: 201608
  4. TRASTUZUMAB. [Suspect]
     Active Substance: TRASTUZUMAB
     Indication: HER2 POSITIVE BREAST CANCER
     Dosage: UNK
     Route: 065
     Dates: start: 201608, end: 201610

REACTIONS (1)
  - Haematotoxicity [Unknown]

NARRATIVE: CASE EVENT DATE: 2016
